FAERS Safety Report 7618357 (Version 4)
Quarter: 2015Q3

REPORT INFORMATION
  Report Type: Report from Study
  Country: RU (occurrence: RU)
  Receive Date: 20101006
  Receipt Date: 20150701
  Transmission Date: 20151125
  Serious: Yes (Hospitalization)
  Sender: FDA-Public Use
  Company Number: PHHO2010RU11775

PATIENT
  Age: 74 Year
  Sex: Female
  Weight: 80 kg

DRUGS (4)
  1. COMPARATOR ENALAPRIL [Suspect]
     Active Substance: ENALAPRIL
     Indication: CARDIAC FAILURE
     Dosage: UNK
     Route: 048
     Dates: start: 20100701
  2. DIUVER [Concomitant]
     Active Substance: TORSEMIDE
     Indication: PRODUCT USED FOR UNKNOWN INDICATION
     Dosage: UNK
     Route: 065
     Dates: start: 20091015
  3. ALISKIREN [Suspect]
     Active Substance: ALISKIREN
     Indication: CARDIAC FAILURE
     Dosage: UNK
     Route: 048
     Dates: start: 20100728
  4. NO TREATMENT RECEIVED [Suspect]
     Active Substance: UNSPECIFIED INGREDIENT
     Indication: CARDIAC FAILURE
     Dosage: NO TREATMENT
     Route: 065

REACTIONS (13)
  - Dilatation ventricular [Recovered/Resolved]
  - Cardiac failure chronic [Recovered/Resolved]
  - Disease progression [Recovered/Resolved]
  - Mitral valve incompetence [Recovered/Resolved]
  - Fatigue [Recovered/Resolved]
  - Cardiac failure congestive [Recovered/Resolved]
  - Left ventricular hypertrophy [Recovered/Resolved]
  - Hyperhidrosis [Recovered/Resolved]
  - Asthenia [Recovered/Resolved]
  - Aortic valve sclerosis [Recovered/Resolved]
  - Aortic valve incompetence [Recovered/Resolved]
  - Dyspnoea [Recovered/Resolved]
  - Aneurysm [Recovered/Resolved]

NARRATIVE: CASE EVENT DATE: 20100801
